FAERS Safety Report 5501790-7 (Version None)
Quarter: 2007Q4

REPORT INFORMATION
  Report Type: 
  Country: None (occurrence: None)
  Receive Date: 20071018
  Receipt Date: 20070502
  Transmission Date: 20080405
  Serious: Yes (Hospitalization, Other)
  Sender: FDA-Public Use
  Company Number: 2007036119

PATIENT
  Age: 60 Year
  Sex: Female

DRUGS (1)
  1. NEURONTIN [Suspect]
     Indication: BURNING SENSATION
     Dosage: 1200 MG (300 MG, 1 IN 1 6 HR), ORAL
     Route: 048
     Dates: start: 19960801

REACTIONS (1)
  - CEREBROVASCULAR ACCIDENT [None]
